FAERS Safety Report 25883416 (Version 1)
Quarter: 2025Q4

REPORT INFORMATION
  Report Type: Spontaneous
  Country: GB (occurrence: GB)
  Receive Date: 20251006
  Receipt Date: 20251006
  Transmission Date: 20260118
  Serious: Yes (Other)
  Sender: CIPLA
  Company Number: GB-MHRA-WEBRADR-202509220844185770-LCQTJ

PATIENT

DRUGS (1)
  1. RIVAROXABAN [Suspect]
     Active Substance: RIVAROXABAN
     Indication: Atrial fibrillation
     Dosage: 20 MILLIGRAM (TABLET)
     Route: 048
     Dates: start: 20250522, end: 20250919

REACTIONS (1)
  - Hypotension [Recovered/Resolved with Sequelae]
